FAERS Safety Report 9370787 (Version 2)
Quarter: 2013Q3

REPORT INFORMATION
  Report Type: Report from Study
  Country: US (occurrence: US)
  Receive Date: 20130626
  Receipt Date: 20130814
  Transmission Date: 20140515
  Serious: Yes (Hospitalization)
  Sender: FDA-Public Use
  Company Number: US-US-EMD SERONO, INC.-7219484

PATIENT
  Age: 50 Year
  Sex: Female
  Weight: 118 kg

DRUGS (2)
  1. REBIF [Suspect]
     Indication: MULTIPLE SCLEROSIS
     Route: 058
     Dates: start: 20100514
  2. ALEVE                              /00256202/ [Concomitant]
     Indication: PREMEDICATION

REACTIONS (4)
  - Myocardial infarction [Unknown]
  - Ear infection [Not Recovered/Not Resolved]
  - Chondropathy [Unknown]
  - Back injury [Unknown]
